FAERS Safety Report 22016442 (Version 2)
Quarter: 2023Q1

REPORT INFORMATION
  Report Type: Spontaneous
  Country: JP (occurrence: JP)
  Receive Date: 20230221
  Receipt Date: 20230314
  Transmission Date: 20230417
  Serious: Yes (Other)
  Sender: FDA-Public Use
  Company Number: JP-MSD-M2023-07057

PATIENT
  Age: 65 Year
  Sex: Male

DRUGS (7)
  1. LAGEVRIO [Suspect]
     Active Substance: MOLNUPIRAVIR
     Indication: COVID-19 treatment
     Dosage: 800 MILLIGRAM, BID
     Route: 048
     Dates: start: 20230110, end: 20230112
  2. METFORMIN HYDROCHLORIDE\VILDAGLIPTIN [Suspect]
     Active Substance: METFORMIN HYDROCHLORIDE\VILDAGLIPTIN
     Indication: Type 2 diabetes mellitus
     Dosage: 1 DOSAGE FORM, BID (AFTER BREAKFAST AND DINNER)
     Route: 048
     Dates: end: 2023
  3. TRAZODONE HYDROCHLORIDE [Concomitant]
     Active Substance: TRAZODONE HYDROCHLORIDE
     Dosage: 25 MILLIGRAM, QD (BEFORE BED)
     Route: 048
  4. EPALRESTAT [Concomitant]
     Active Substance: EPALRESTAT
     Dosage: 50 MILLIGRAM, TID (BEFORE EACH MEAL)
     Route: 048
  5. BIO-THREE [Concomitant]
     Active Substance: HERBALS
     Dosage: 2 DOSAGE FORM, BID (AFTER BREAKFAST AND DINNER)
     Route: 048
  6. FLUNITRAZEPAM [Concomitant]
     Active Substance: FLUNITRAZEPAM
     Dosage: 2 MILLIGRAM, QD (BEFORE BED)
     Route: 048
  7. SP [DEQUALINIUM CHLORIDE] [Concomitant]
     Indication: Oropharyngeal pain
     Dosage: UNK
     Route: 048
     Dates: start: 20230110

REACTIONS (4)
  - Dermatitis bullous [Not Recovered/Not Resolved]
  - Type 2 diabetes mellitus [Unknown]
  - Decreased appetite [Not Recovered/Not Resolved]
  - Taste disorder [Not Recovered/Not Resolved]

NARRATIVE: CASE EVENT DATE: 20230112
